FAERS Safety Report 14719319 (Version 1)
Quarter: 2018Q2

REPORT INFORMATION
  Report Type: Spontaneous
  Country: FR (occurrence: FR)
  Receive Date: 20180405
  Receipt Date: 20180405
  Transmission Date: 20180711
  Serious: Yes (Hospitalization)
  Sender: FDA-Public Use
  Company Number: FR-CIPLA LTD.-2018FR14396

PATIENT

DRUGS (14)
  1. VINCRISTINE [Suspect]
     Active Substance: VINCRISTINE
     Indication: DIFFUSE LARGE B-CELL LYMPHOMA STAGE IV
     Dosage: 8 CYCLES, CYCLICAL, UNK
     Route: 065
  2. RITUXIMAB. [Suspect]
     Active Substance: RITUXIMAB
     Indication: DIFFUSE LARGE B-CELL LYMPHOMA STAGE IV
     Dosage: 8 CYCLES, CYCLICAL, UNK
     Route: 065
  3. CYTARABINE. [Suspect]
     Active Substance: CYTARABINE
     Indication: DIFFUSE LARGE B-CELL LYMPHOMA STAGE IV
     Dosage: SALVAGE THERAPY, 3 CYCLES, CYCLICAL, UNK
     Route: 065
  4. OXALIPLATIN. [Suspect]
     Active Substance: OXALIPLATIN
     Indication: DIFFUSE LARGE B-CELL LYMPHOMA STAGE IV
     Dosage: 3 CYCLES, SLAVAGE THERAPY, CYCLICAL
     Route: 065
  5. CYCLOPHOSPHAMIDE. [Suspect]
     Active Substance: CYCLOPHOSPHAMIDE
     Indication: DIFFUSE LARGE B-CELL LYMPHOMA STAGE IV
     Dosage: 8 CYCLES, CYCLICAL, UNK
     Route: 065
  6. RITUXIMAB. [Suspect]
     Active Substance: RITUXIMAB
     Dosage: SALVAGE THERAPY, 3 CYCLES, CYCLICAL, UNK
  7. PREDNISOLONE. [Suspect]
     Active Substance: PREDNISOLONE
     Indication: DIFFUSE LARGE B-CELL LYMPHOMA STAGE IV
     Dosage: 8 CYCLES, CYCLICAL, UNK
     Route: 065
  8. DEXAMETHASONE. [Suspect]
     Active Substance: DEXAMETHASONE
     Indication: DIFFUSE LARGE B-CELL LYMPHOMA STAGE IV
     Dosage: SALVAGE THERAPY, 3 CYCLES, CYCLICAL, UNK
     Route: 065
  9. ZEVALIN [Suspect]
     Active Substance: IBRITUMOMAB TIUXETAN
     Indication: DIFFUSE LARGE B-CELL LYMPHOMA STAGE IV
     Dosage: CYCLICAL, UNK
     Route: 065
  10. DOXORUBICIN HYDROCHLORIDE. [Suspect]
     Active Substance: DOXORUBICIN HYDROCHLORIDE
     Indication: DIFFUSE LARGE B-CELL LYMPHOMA STAGE IV
     Dosage: 8 CYCLES, CYCLICAL, UNK
     Route: 065
  11. ETOPOSIDE. [Suspect]
     Active Substance: ETOPOSIDE
     Indication: DIFFUSE LARGE B-CELL LYMPHOMA STAGE IV
     Dosage: 400 MG/M2, D-3, CYCLICAL, UNK
     Route: 065
  12. CYTARABINE. [Suspect]
     Active Substance: CYTARABINE
     Dosage: 400 MG/M2, D-3, CYCLICAL, UNK
  13. BICNU [Suspect]
     Active Substance: CARMUSTINE
     Indication: DIFFUSE LARGE B-CELL LYMPHOMA STAGE IV
     Dosage: 300 MG/M2, D-7, CYCLICAL, UNK
     Route: 065
  14. MELPHALAN. [Suspect]
     Active Substance: MELPHALAN
     Indication: DIFFUSE LARGE B-CELL LYMPHOMA STAGE IV
     Dosage: 140 MG/M2, D-2, CYCLICAL, UNK
     Route: 065

REACTIONS (5)
  - Thrombocytopenia [Unknown]
  - Pleural effusion [Recovered/Resolved]
  - Hepatic failure [Unknown]
  - Generalised oedema [Unknown]
  - Venoocclusive liver disease [Recovered/Resolved]
